FAERS Safety Report 12194675 (Version 1)
Quarter: 2016Q1

REPORT INFORMATION
  Report Type: Spontaneous
  Country: US (occurrence: None)
  Receive Date: 20160318
  Receipt Date: 20160318
  Transmission Date: 20160526
  Serious: Yes (Hospitalization)
  Sender: FDA-Public Use
  Company Number: None

PATIENT
  Age: 54 Year
  Sex: Male
  Weight: 127 kg

DRUGS (11)
  1. ONDANSETRON [Concomitant]
     Active Substance: ONDANSETRON
  2. PROPRANOLOL [Concomitant]
     Active Substance: PROPRANOLOL\PROPRANOLOL HYDROCHLORIDE
  3. SENNA-DOCUSATE SODIUM [Concomitant]
  4. PRILOSEC OTC [Concomitant]
     Active Substance: OMEPRAZOLE MAGNESIUM
  5. FENTANYL. [Concomitant]
     Active Substance: FENTANYL
  6. HYDROCODONE BITARTRATE AND ACETAMINOPHEN [Concomitant]
     Active Substance: ACETAMINOPHEN\HYDROCODONE BITARTRATE
  7. PREDNISONE. [Concomitant]
     Active Substance: PREDNISONE
  8. CISPLATIN. [Suspect]
     Active Substance: CISPLATIN
     Dates: end: 20160301
  9. PROCHLORPERAZINE MALEATE. [Concomitant]
     Active Substance: PROCHLORPERAZINE MALEATE
  10. BENZONATATE. [Concomitant]
     Active Substance: BENZONATATE
  11. SB POLYETHYLENE GLYCOL [Concomitant]

REACTIONS (5)
  - Asthenia [None]
  - Culture positive [None]
  - Dyspnoea [None]
  - Cellulitis [None]
  - Staphylococcal infection [None]

NARRATIVE: CASE EVENT DATE: 20160306
